FAERS Safety Report 25225436 (Version 1)
Quarter: 2025Q2

REPORT INFORMATION
  Report Type: Spontaneous
  Country: FR (occurrence: FR)
  Receive Date: 20250422
  Receipt Date: 20250422
  Transmission Date: 20250716
  Serious: Yes (Life-Threatening)
  Sender: PROVEPHARM
  Company Number: FR-Provepharm-2175345

PATIENT
  Age: 24 Year
  Sex: Female

DRUGS (1)
  1. INDIGO CARMINE [Suspect]
     Active Substance: INDIGOTINDISULFONATE SODIUM

REACTIONS (3)
  - Anaphylactic shock [Recovered/Resolved]
  - Product use in unapproved indication [Unknown]
  - Incorrect route of product administration [Unknown]
